FAERS Safety Report 9999497 (Version 1)
Quarter: 2014Q1

REPORT INFORMATION
  Report Type: Spontaneous
  Country: US (occurrence: US)
  Receive Date: 20140312
  Receipt Date: 20140312
  Transmission Date: 20141002
  Serious: No
  Sender: FDA-Public Use
  Company Number: US-TEVA-452401USA

PATIENT
  Age: 5 Year
  Sex: 0

DRUGS (1)
  1. AMOXICILLIN [Suspect]
     Dosage: 400/5ML
     Route: 048

REACTIONS (3)
  - Abdominal pain upper [Unknown]
  - Diarrhoea [Unknown]
  - Arthralgia [Unknown]
